FAERS Safety Report 25475661 (Version 1)
Quarter: 2025Q2

REPORT INFORMATION
  Report Type: Spontaneous
  Country: EU (occurrence: EU)
  Receive Date: 20250624
  Receipt Date: 20250624
  Transmission Date: 20250716
  Serious: Yes (Other)
  Sender: BAUSCH AND LOMB
  Company Number: PT-NOVPHSZ-PHHY2018PT188965

PATIENT
  Age: 72 Year

DRUGS (3)
  1. DORZOLAMIDE HYDROCHLORIDE\TIMOLOL MALEATE [Suspect]
     Active Substance: DORZOLAMIDE HYDROCHLORIDE\TIMOLOL MALEATE
     Indication: Glaucoma
     Dosage: DOSE: 2 (UNITS UNSPECIFIED), DORZOLAMIDE 2 PERCENT/TIMOLOL 0.5 PERCENT, BID
     Route: 061
  2. TRAVOPROST [Suspect]
     Active Substance: TRAVOPROST
     Indication: Glaucoma
     Dosage: 0.004 PERCENT, QD
     Route: 061
  3. BRIMONIDINE [Suspect]
     Active Substance: BRIMONIDINE TARTRATE
     Indication: Glaucoma
     Dosage: 2 PERCENT, BID
     Route: 061

REACTIONS (2)
  - Glaucoma [Unknown]
  - Disease progression [Unknown]
